FAERS Safety Report 17548005 (Version 2)
Quarter: 2020Q1

REPORT INFORMATION
  Report Type: Spontaneous
  Country: US (occurrence: US)
  Receive Date: 20200317
  Receipt Date: 20200319
  Transmission Date: 20200409
  Serious: Yes (Other)
  Sender: FDA-Public Use
  Company Number: US-ASTRAZENECA-2020SE34178

PATIENT
  Sex: Female
  Weight: 62.6 kg

DRUGS (4)
  1. SYMBICORT [Suspect]
     Active Substance: BUDESONIDE\FORMOTEROL FUMARATE DIHYDRATE
     Indication: CHRONIC OBSTRUCTIVE PULMONARY DISEASE
     Dosage: 160/4.5 UG,TWO PUFFS TWICE DAILY
     Route: 055
  2. SYMBICORT [Suspect]
     Active Substance: BUDESONIDE\FORMOTEROL FUMARATE DIHYDRATE
     Indication: LUNG DISORDER
     Dosage: 160/4.5 UG,TWO PUFFS TWICE DAILY
     Route: 055
  3. BUDESONIDE AND FORMOTEROL [Suspect]
     Active Substance: BUDESONIDE\FORMOTEROL
     Indication: CHRONIC OBSTRUCTIVE PULMONARY DISEASE
     Dosage: 160/4.5 UG,TWO TIMES A DAY, GENERIC
     Route: 055
     Dates: start: 20200126
  4. BUDESONIDE AND FORMOTEROL [Suspect]
     Active Substance: BUDESONIDE\FORMOTEROL
     Indication: LUNG DISORDER
     Dosage: 160/4.5 UG,TWO TIMES A DAY, GENERIC
     Route: 055
     Dates: start: 20200126

REACTIONS (4)
  - Dry mouth [Recovered/Resolved]
  - Lung neoplasm malignant [Unknown]
  - Dry throat [Recovered/Resolved]
  - Throat tightness [Recovered/Resolved]
